FAERS Safety Report 7285935-7 (Version None)
Quarter: 2011Q1

REPORT INFORMATION
  Report Type: 
  Country: None (occurrence: None)
  Receive Date: 20110210
  Receipt Date: 20110203
  Transmission Date: 20110831
  Serious: Yes (Other)
  Sender: FDA-Public Use
  Company Number: JP-MERCK-1101USA02259

PATIENT
  Age: 38 Year
  Sex: Female

DRUGS (2)
  1. DECADRON [Suspect]
     Indication: ENDOCRINE TEST
     Route: 048
  2. DECADRON [Suspect]
     Route: 048

REACTIONS (1)
  - HYPERTENSIVE CRISIS [None]
